FAERS Safety Report 15057429 (Version 1)
Quarter: 2018Q2

REPORT INFORMATION
  Report Type: Spontaneous
  Country: JP (occurrence: JP)
  Receive Date: 20180625
  Receipt Date: 20180625
  Transmission Date: 20180711
  Serious: Yes (Life-Threatening, Hospitalization, Other)
  Sender: FDA-Public Use
  Company Number: JP-ACCORD-068532

PATIENT
  Age: 66 Year
  Sex: Male

DRUGS (1)
  1. CISPLATIN. [Suspect]
     Active Substance: CISPLATIN
     Indication: HYPOPHARYNGEAL CANCER STAGE IV

REACTIONS (1)
  - Oesophageal rupture [Recovering/Resolving]
